FAERS Safety Report 10156727 (Version 1)
Quarter: 2014Q2

REPORT INFORMATION
  Report Type: Not Available
  Country: US (occurrence: US)
  Receive Date: 20140507
  Receipt Date: 20140507
  Transmission Date: 20141212
  Serious: No
  Sender: FDA-Public Use
  Company Number: US-LUPIN PHARMACEUTICALS INC.-E2B_00000812

PATIENT
  Age: 11 Year
  Sex: Female

DRUGS (1)
  1. IMIPRAMINE HYDROCHLORIDE TABLETS USP 10MG [Suspect]
     Indication: ENURESIS
     Dates: start: 20130402, end: 20130427

REACTIONS (1)
  - Tic [Unknown]
